FAERS Safety Report 6570406-3 (Version None)
Quarter: 2010Q1

REPORT INFORMATION
  Report Type: 
  Country: None (occurrence: None)
  Receive Date: 20100204
  Receipt Date: 20090226
  Transmission Date: 20100710
  Serious: No
  Sender: FDA-Public Use
  Company Number: A0770696A

PATIENT
  Age: 57 Year
  Sex: Female

DRUGS (15)
  1. ARIXTRA [Suspect]
     Indication: PROPHYLAXIS
     Dosage: 10MG PER DAY
     Route: 058
     Dates: start: 20090225
  2. ALBUTEROL [Concomitant]
  3. GUAIFENESIN [Concomitant]
  4. HYDROCHLOROTHIAZIDE [Concomitant]
  5. HYDROXYZINE [Concomitant]
  6. LIDODERM [Concomitant]
  7. LISINOPRIL [Concomitant]
  8. METOCLOPRAMIDE [Concomitant]
  9. MORPHINE [Concomitant]
  10. MOXIFLOXACIN HCL [Concomitant]
  11. OXYCODONE HCL AND ACETAMINOPHEN [Concomitant]
  12. OXPENTIFYLLINE [Concomitant]
  13. TETRACYCLINE [Concomitant]
  14. VANCOMYCIN [Concomitant]
  15. SILVADENE [Concomitant]

REACTIONS (1)
  - EPISTAXIS [None]
